FAERS Safety Report 23319721 (Version 2)
Quarter: 2024Q2

REPORT INFORMATION
  Report Type: Spontaneous
  Country: US (occurrence: US)
  Receive Date: 20231220
  Receipt Date: 20240514
  Transmission Date: 20240715
  Serious: Yes (Disabling, Other)
  Sender: FDA-Public Use
  Company Number: US-HORIZON THERAPEUTICS-HZN-2023-010720

PATIENT

DRUGS (24)
  1. TEPEZZA [Suspect]
     Active Substance: TEPROTUMUMAB-TRBW
     Indication: Endocrine ophthalmopathy
     Dosage: 784 MG, FIRST INFUSION
     Route: 042
     Dates: start: 20211206
  2. TEPEZZA [Suspect]
     Active Substance: TEPROTUMUMAB-TRBW
     Dosage: 1560 MG, SECOND INFUSION
     Route: 042
     Dates: start: 20211227
  3. TEPEZZA [Suspect]
     Active Substance: TEPROTUMUMAB-TRBW
     Dosage: 1560 MG, THIRD INFUSION
     Route: 042
     Dates: start: 20220114
  4. TEPEZZA [Suspect]
     Active Substance: TEPROTUMUMAB-TRBW
     Dosage: 1560 MG, FOURTH INFUSION
     Route: 042
     Dates: start: 20220204
  5. TEPEZZA [Suspect]
     Active Substance: TEPROTUMUMAB-TRBW
     Dosage: 1560 MG, FOURTH INFUSION
     Route: 042
     Dates: start: 20220204
  6. TEPEZZA [Suspect]
     Active Substance: TEPROTUMUMAB-TRBW
     Dosage: 1560 MG, FIFTH INFUSION
     Route: 042
     Dates: start: 20220317
  7. TEPEZZA [Suspect]
     Active Substance: TEPROTUMUMAB-TRBW
     Dosage: 1560 MG, SIXTH INFUSION
     Route: 042
     Dates: start: 20220407
  8. TEPEZZA [Suspect]
     Active Substance: TEPROTUMUMAB-TRBW
     Dosage: 1560 MG, SIXTH INFUSION
     Route: 042
     Dates: start: 20220407
  9. TEPEZZA [Suspect]
     Active Substance: TEPROTUMUMAB-TRBW
     Dosage: 1560 MG, SEVENTH INFUSION
     Route: 042
     Dates: start: 20220428
  10. TEPEZZA [Suspect]
     Active Substance: TEPROTUMUMAB-TRBW
     Dosage: 1560 MG, EIGHTH INFUSION
     Route: 042
     Dates: start: 20220519
  11. TEPEZZA [Suspect]
     Active Substance: TEPROTUMUMAB-TRBW
     Dosage: 1560 MG, EIGHTH INFUSION
     Route: 042
     Dates: start: 20220515
  12. VITAMIN A [Concomitant]
     Active Substance: VITAMIN A
     Route: 048
  13. ZINC [Concomitant]
     Active Substance: PYRITHIONE ZINC\ZINC\ZINC CHLORIDE
  14. UBIDECARENONE [Concomitant]
     Active Substance: UBIDECARENONE
     Dosage: 400 MG
     Route: 048
  15. HERBALS\TURMERIC [Concomitant]
     Active Substance: HERBALS\TURMERIC
     Dosage: 2000 MG
     Route: 048
  16. OMEGA-3 FATTY ACIDS [Concomitant]
     Active Substance: OMEGA-3 FATTY ACIDS
  17. POTASSIUM CHLORIDE [Concomitant]
     Active Substance: POTASSIUM CHLORIDE
     Route: 048
  18. VITAMINS [Concomitant]
     Active Substance: VITAMINS
     Dosage: UNK UNK, QD
     Route: 048
  19. DIETARY SUPPLEMENT\HERBALS\MILK THISTLE [Concomitant]
     Active Substance: MILK THISTLE
     Dosage: 600 MG
     Route: 048
  20. METHIMAZOLE [Concomitant]
     Active Substance: METHIMAZOLE
     Dosage: 10 MG, QD
     Route: 048
     Dates: start: 20211014
  21. METFORMIN [Concomitant]
     Active Substance: METFORMIN HYDROCHLORIDE
  22. Glucosamine + Chondroitin with Msm [Concomitant]
  23. VITAMIN D3 [Concomitant]
     Active Substance: CHOLECALCIFEROL
  24. LIPITOR [Concomitant]
     Active Substance: ATORVASTATIN CALCIUM
     Dosage: 20 MG
     Route: 048
     Dates: start: 20210521

REACTIONS (16)
  - Deafness neurosensory [Recovering/Resolving]
  - Type 2 diabetes mellitus [Unknown]
  - Anxiety [Not Recovered/Not Resolved]
  - Economic problem [Not Recovered/Not Resolved]
  - Symptom recurrence [Not Recovered/Not Resolved]
  - Ecchymosis [Unknown]
  - Emotional distress [Unknown]
  - Impaired quality of life [Unknown]
  - Discomfort [Unknown]
  - Tinnitus [Unknown]
  - Product design issue [Unknown]
  - Product quality issue [Unknown]
  - Physical disability [Not Recovered/Not Resolved]
  - Concomitant disease aggravated [Unknown]
  - Injury [Unknown]
  - Pain [Unknown]
